FAERS Safety Report 4402200-3 (Version None)
Quarter: 2004Q3

REPORT INFORMATION
  Report Type: 
  Country: None (occurrence: None)
  Receive Date: 20040716
  Receipt Date: 20040712
  Transmission Date: 20050211
  Serious: No
  Sender: FDA-Public Use
  Company Number: D01200402467

PATIENT
  Age: 66 Year
  Sex: Female

DRUGS (7)
  1. FONDAPARINUX [Suspect]
     Indication: ANGINA UNSTABLE
     Dosage: 2.5 MG QD, SUBCUTANEOUS
     Route: 058
     Dates: start: 20040604, end: 20040606
  2. ASPIRIN [Concomitant]
  3. CLOPIDOGREL [Concomitant]
  4. UNFRACTIONED HEPARIN       (HEPARIN SODIUM) [Concomitant]
  5. NITRATE [Concomitant]
  6. STATINE [Concomitant]
  7. TICLOPIDINE HCL [Concomitant]

REACTIONS (3)
  - ARTERIAL THROMBOSIS [None]
  - CATHETER RELATED COMPLICATION [None]
  - PROCEDURAL COMPLICATION [None]
